FAERS Safety Report 23311625 (Version 1)
Quarter: 2023Q4

REPORT INFORMATION
  Report Type: Report from Study
  Country: FR (occurrence: None)
  Receive Date: 20231219
  Receipt Date: 20231219
  Transmission Date: 20240110
  Serious: Yes (Hospitalization)
  Sender: FDA-Public Use
  Company Number: 2023A283271

PATIENT
  Age: 471 Month
  Sex: Female
  Weight: 71 kg

DRUGS (1)
  1. OSIMERTINIB [Suspect]
     Active Substance: OSIMERTINIB
     Indication: Non-small cell lung cancer
     Route: 048
     Dates: start: 20220825, end: 20231103

REACTIONS (1)
  - Blood pressure systolic decreased [Recovered/Resolved with Sequelae]

NARRATIVE: CASE EVENT DATE: 20231018
